FAERS Safety Report 20236870 (Version 4)
Quarter: 2022Q4

REPORT INFORMATION
  Report Type: Report from Study
  Country: GB (occurrence: GB)
  Receive Date: 20211228
  Receipt Date: 20221128
  Transmission Date: 20230112
  Serious: Yes (Death, Hospitalization, Other)
  Sender: FDA-Public Use
  Company Number: GB-GLAXOSMITHKLINE-GB2021EME252543

PATIENT

DRUGS (1)
  1. NIRAPARIB [Suspect]
     Active Substance: NIRAPARIB
     Indication: Neoplasm malignant
     Dosage: UNK

REACTIONS (21)
  - Death [Fatal]
  - Ascites [Unknown]
  - Abdominal cavity drainage [Unknown]
  - Decreased appetite [Unknown]
  - General physical health deterioration [Unknown]
  - Weight decreased [Unknown]
  - Oedema peripheral [Unknown]
  - Renal impairment [Unknown]
  - Fatigue [Unknown]
  - Blood pressure increased [Unknown]
  - Nausea [Recovering/Resolving]
  - Peripheral swelling [Unknown]
  - Lymphoedema [Unknown]
  - Condition aggravated [Unknown]
  - SARS-CoV-2 test positive [Unknown]
  - Ageusia [Unknown]
  - Derealisation [Unknown]
  - Blood pressure decreased [Unknown]
  - Heart rate increased [Unknown]
  - Chest pain [Unknown]
  - Hepatic function abnormal [Unknown]

NARRATIVE: CASE EVENT DATE: 20211209
